FAERS Safety Report 8608435-8 (Version None)
Quarter: 2012Q3

REPORT INFORMATION
  Report Type: 
  Country: None (occurrence: None)
  Receive Date: 20120821
  Receipt Date: 20120816
  Transmission Date: 20120928
  Serious: Yes (Other)
  Sender: FDA-Public Use
  Company Number: GB-ROCHE-1102906

PATIENT
  Sex: Male
  Weight: 117.9 kg

DRUGS (4)
  1. AVASTIN [Suspect]
     Indication: COLON CANCER
     Dosage: MOST RECENT DOSE PRIOR TO SAE 26/OCT/2006
     Route: 042
     Dates: start: 20060504
  2. XELODA [Suspect]
     Indication: COLON CANCER
     Dosage: MOST RECENT DOSE PRIOR TO SAE 19/SEP/2006
     Route: 048
     Dates: start: 20060504
  3. XELODA [Suspect]
     Indication: RECTAL CANCER
  4. AVASTIN [Suspect]
     Indication: RECTAL CANCER

REACTIONS (1)
  - RECTAL NEOPLASM [None]
